FAERS Safety Report 25274175 (Version 2)
Quarter: 2025Q2

REPORT INFORMATION
  Report Type: Spontaneous
  Country: KR (occurrence: KR)
  Receive Date: 20250506
  Receipt Date: 20250522
  Transmission Date: 20250717
  Serious: Yes (Other)
  Sender: CHATTEM
  Company Number: KR-OPELLA-2025OHG013506

PATIENT
  Age: 3 Year
  Sex: Female
  Weight: 13.3 kg

DRUGS (5)
  1. XYZAL [Suspect]
     Active Substance: LEVOCETIRIZINE DIHYDROCHLORIDE
     Indication: Nasopharyngitis
     Dosage: 2.5 MILLILITER, 2X/DAY (BID)
     Route: 048
     Dates: end: 20250416
  2. XYZAL [Suspect]
     Active Substance: LEVOCETIRIZINE DIHYDROCHLORIDE
     Indication: Off label use
     Route: 048
     Dates: start: 20250417, end: 202504
  3. Citus dry syrup [Concomitant]
     Indication: Product used for unknown indication
     Route: 065
     Dates: start: 20250414
  4. PENIRAMIN [Concomitant]
     Indication: Product used for unknown indication
     Route: 065
     Dates: start: 20250414
  5. Synatura [Concomitant]
     Indication: Product used for unknown indication
     Route: 065

REACTIONS (5)
  - Gastrointestinal hypomotility [Recovered/Resolved]
  - Product preparation issue [Unknown]
  - Product with quality issue administered [Unknown]
  - Product storage error [Unknown]
  - Off label use [Unknown]

NARRATIVE: CASE EVENT DATE: 20250101
